FAERS Safety Report 10084083 (Version 2)
Quarter: 2014Q2

REPORT INFORMATION
  Report Type: Report from Study
  Country: NZ (occurrence: NZ)
  Receive Date: 20140417
  Receipt Date: 20140507
  Transmission Date: 20141212
  Serious: Yes (Other)
  Sender: FDA-Public Use
  Company Number: PHHY2014NZ046880

PATIENT
  Sex: Male

DRUGS (2)
  1. CLOZARIL [Suspect]
     Dosage: UNK
     Dates: start: 20140115, end: 20140124
  2. CLOZARIL [Suspect]
     Dosage: UNK
     Dates: start: 20140303

REACTIONS (3)
  - Swelling face [Unknown]
  - Tachycardia [Unknown]
  - Angioedema [Unknown]
